FAERS Safety Report 16705775 (Version 1)
Quarter: 2019Q4

REPORT INFORMATION
  Report Type: Spontaneous
  Country: US (occurrence: US)
  Receive Date: 20190814
  Receipt Date: 20190814
  Transmission Date: 20200122
  Serious: Yes (Other)
  Sender: FDA-Public Use
  Company Number: None

PATIENT
  Age: 76 Year
  Sex: Male
  Weight: 83.25 kg

DRUGS (17)
  1. TEMOZOLOMIDE. [Suspect]
     Active Substance: TEMOZOLOMIDE
     Indication: MALIGNANT MELANOMA
     Dosage: ?          OTHER FREQUENCY:DAILY X 5 DAYS/28;?
     Route: 048
     Dates: start: 20190501
  2. TEMOZOLOMIDE. [Suspect]
     Active Substance: TEMOZOLOMIDE
     Indication: MALIGNANT MELANOMA
     Dosage: ?          OTHER FREQUENCY:DAILY X 5 DAYS /28;?
     Route: 048
     Dates: start: 20190501
  3. ASPIRIN. [Concomitant]
     Active Substance: ASPIRIN
  4. FINASTERIDE. [Concomitant]
     Active Substance: FINASTERIDE
  5. INTRON A [Concomitant]
     Active Substance: INTERFERON ALFA-2B
  6. IBUPROFEN. [Concomitant]
     Active Substance: IBUPROFEN
  7. LORAZEPAM. [Concomitant]
     Active Substance: LORAZEPAM
  8. ONDANSETRON [Concomitant]
     Active Substance: ONDANSETRON
  9. OXYCODONE [Concomitant]
     Active Substance: OXYCODONE
  10. TRAZODONE [Concomitant]
     Active Substance: TRAZODONE HYDROCHLORIDE
  11. LEVOTHYROXINE. [Concomitant]
     Active Substance: LEVOTHYROXINE
  12. METAMUCIL [Concomitant]
     Active Substance: PLANTAGO SEED
  13. RANITIDINE. [Concomitant]
     Active Substance: RANITIDINE
  14. NAPROXEN. [Concomitant]
     Active Substance: NAPROXEN
  15. PRAVASTATIN. [Concomitant]
     Active Substance: PRAVASTATIN
  16. LISINOPRIL. [Concomitant]
     Active Substance: LISINOPRIL
  17. PROCHLORPERAZINE. [Concomitant]
     Active Substance: PROCHLORPERAZINE

REACTIONS (1)
  - Hospice care [None]
